FAERS Safety Report 4851299-9 (Version None)
Quarter: 2005Q4

REPORT INFORMATION
  Report Type: 
  Country: None (occurrence: None)
  Receive Date: 20051207
  Receipt Date: 20051124
  Transmission Date: 20060501
  Serious: Yes (Other)
  Sender: FDA-Public Use
  Company Number: B0401197A

PATIENT
  Age: 34 Year
  Sex: Male

DRUGS (4)
  1. PAROXETINE HCL [Suspect]
     Dosage: ORAL
     Route: 048
  2. SULPIRIDE (SULPIRIDE) [Suspect]
     Dosage: 300 MG / PER DAY
  3. CARBAMAZEPINE [Suspect]
     Dosage: 500 MG / PER DAY
  4. ETIZOLAM [Concomitant]

REACTIONS (1)
  - ATRIOVENTRICULAR BLOCK FIRST DEGREE [None]
